FAERS Safety Report 9870150 (Version 2)
Quarter: 2014Q1

REPORT INFORMATION
  Report Type: Spontaneous
  Country: GB (occurrence: GB)
  Receive Date: 20140205
  Receipt Date: 20140214
  Transmission Date: 20141002
  Serious: Yes (Hospitalization, Other)
  Sender: FDA-Public Use
  Company Number: GB-PFIZER INC-2014028105

PATIENT
  Age: 34 Year
  Sex: Female
  Weight: 99.8 kg

DRUGS (9)
  1. LANSOPRAZOLE [Suspect]
     Indication: GASTROOESOPHAGEAL REFLUX PROPHYLAXIS
     Dosage: 30MG, 1X/DAY
     Route: 048
     Dates: start: 20100907, end: 20100928
  2. TRANEXAMIC ACID [Suspect]
     Dosage: 1 DF, 4X/DAY
     Route: 048
     Dates: start: 20100922, end: 20100928
  3. RITUXIMAB [Suspect]
     Indication: HAEMATOLOGY TEST ABNORMAL
     Dosage: 375MG/M2, 2X/DAY
     Route: 042
     Dates: start: 20100917, end: 20100924
  4. NPLATE [Suspect]
     Indication: IMMUNE THROMBOCYTOPENIC PURPURA
     Dosage: 1MG/KG, UNK
     Route: 058
     Dates: start: 20100920, end: 20100920
  5. DEXAMETHASONE [Suspect]
     Indication: ANTIEMETIC SUPPORTIVE CARE
     Route: 048
     Dates: start: 20100907, end: 20100910
  6. IMMUNOGLOBULIN G HUMAN [Suspect]
     Indication: HAEMATOLOGY TEST ABNORMAL
     Dosage: 1000 MG/KG, 1X/DAY
     Route: 042
     Dates: start: 20100922, end: 20100923
  7. NORETHINDRONE [Suspect]
     Dosage: 5MG, 3X/DAY
     Route: 048
     Dates: start: 20100922, end: 20100928
  8. VINCRISTINE SULFATE [Concomitant]
  9. ANTI-D IMMUNOGLOBULIN [Concomitant]

REACTIONS (9)
  - Purpura [Recovered/Resolved]
  - Haemorrhage [Unknown]
  - Rash erythematous [Recovered/Resolved]
  - Haemoglobin decreased [Unknown]
  - Melaena [Unknown]
  - Rectal haemorrhage [Unknown]
  - Vaginal haemorrhage [Unknown]
  - Rash maculo-papular [Recovered/Resolved]
  - Arthralgia [Unknown]
